FAERS Safety Report 19164838 (Version 1)
Quarter: 2021Q2

REPORT INFORMATION
  Report Type: Spontaneous
  Country: US (occurrence: US)
  Receive Date: 20210421
  Receipt Date: 20210421
  Transmission Date: 20210717
  Serious: Yes (Other)
  Sender: FDA-Public Use
  Company Number: US-PFIZER INC-2021406710

PATIENT
  Age: 54 Year
  Sex: Female
  Weight: 52.16 kg

DRUGS (1)
  1. XELJANZ XR [Suspect]
     Active Substance: TOFACITINIB CITRATE
     Indication: ARTHRITIS
     Dosage: 11 MG, 1X/DAY (11MG ONCE NIGHTLY)
     Route: 048
     Dates: start: 2020

REACTIONS (5)
  - Abdominal pain [Unknown]
  - Off label use [Unknown]
  - Decreased appetite [Unknown]
  - Constipation [Unknown]
  - Condition aggravated [Unknown]

NARRATIVE: CASE EVENT DATE: 2021
